FAERS Safety Report 7366289-4 (Version None)
Quarter: 2011Q1

REPORT INFORMATION
  Report Type: 
  Country: None (occurrence: None)
  Receive Date: 20110322
  Receipt Date: 20110308
  Transmission Date: 20110831
  Serious: Yes (Hospitalization)
  Sender: FDA-Public Use
  Company Number: US-JNJFOC-20060605784

PATIENT
  Sex: Male
  Weight: 65 kg

DRUGS (10)
  1. ZOFRAN [Concomitant]
  2. INFLIXIMAB [Suspect]
     Route: 042
  3. INFLIXIMAB [Suspect]
     Route: 042
  4. NEURONTIN [Concomitant]
  5. ACTIGALL [Concomitant]
  6. ATIVAN [Concomitant]
  7. INFLIXIMAB [Suspect]
     Route: 042
  8. INFLIXIMAB [Suspect]
     Indication: DRUG DEPENDENCE
     Route: 042
  9. METHOTREXATE [Concomitant]
  10. AMITRIL [Concomitant]

REACTIONS (1)
  - EXPOSURE TO TOXIC AGENT [None]
